FAERS Safety Report 6141916-8 (Version None)
Quarter: 2009Q1

REPORT INFORMATION
  Report Type: 
  Country: None (occurrence: None)
  Receive Date: 20090331
  Receipt Date: 20090323
  Transmission Date: 20090719
  Serious: Yes (Other)
  Sender: FDA-Public Use
  Company Number: CHNY2009JP01241

PATIENT
  Sex: Male

DRUGS (1)
  1. NICOTINE [Suspect]
     Indication: SMOKING CESSATION THERAPY
     Dosage: 1 DF, QD, TRANSDERMAL
     Route: 062
     Dates: start: 20081112, end: 20081203

REACTIONS (3)
  - ANGINA PECTORIS [None]
  - CHOKING SENSATION [None]
  - DYSPHONIA [None]
